FAERS Safety Report 17694587 (Version 1)
Quarter: 2020Q2

REPORT INFORMATION
  Report Type: Spontaneous
  Country: CO (occurrence: CO)
  Receive Date: 20200422
  Receipt Date: 20200422
  Transmission Date: 20200714
  Serious: Yes (Other)
  Sender: FDA-Public Use
  Company Number: CO-PFIZER INC-2020067271

PATIENT
  Age: 47 Year
  Sex: Female

DRUGS (2)
  1. LETROZOL [Suspect]
     Active Substance: LETROZOLE
     Dosage: UNK
  2. REAMPLA [Suspect]
     Active Substance: PALBOCICLIB
     Dosage: 125 MG, UNK
     Route: 048
     Dates: start: 202002

REACTIONS (10)
  - Depressed mood [Unknown]
  - Dizziness [Not Recovered/Not Resolved]
  - Muscle spasticity [Not Recovered/Not Resolved]
  - Nausea [Not Recovered/Not Resolved]
  - Haemoglobin decreased [Unknown]
  - Decreased appetite [Unknown]
  - Vomiting [Not Recovered/Not Resolved]
  - Constipation [Not Recovered/Not Resolved]
  - Pain in extremity [Not Recovered/Not Resolved]
  - Loss of consciousness [Not Recovered/Not Resolved]

NARRATIVE: CASE EVENT DATE: 2020
